FAERS Safety Report 6396668-3 (Version None)
Quarter: 2009Q4

REPORT INFORMATION
  Report Type: 
  Country: None (occurrence: None)
  Receive Date: 20091012
  Receipt Date: 20091005
  Transmission Date: 20100525
  Serious: Yes (Hospitalization)
  Sender: FDA-Public Use
  Company Number: SE-AMGEN-UK267308

PATIENT
  Sex: Female

DRUGS (9)
  1. NEUPOGEN [Suspect]
     Indication: CHEMOTHERAPY
     Route: 058
     Dates: start: 20071024, end: 20071102
  2. ALLOPURINOL [Concomitant]
     Dates: start: 20071024
  3. UNSPECIFIED ANTINEOPLASTIC AGENT [Concomitant]
  4. LEVOTHYROXINE [Concomitant]
  5. ACYCLOVIR [Concomitant]
     Dates: start: 20071024
  6. PREDNISOLONE [Concomitant]
  7. BACTRIM DS [Concomitant]
     Dates: start: 20071024
  8. ALENDRONIC ACID [Concomitant]
  9. CALCIUM CARBONATE [Concomitant]

REACTIONS (1)
  - BACK PAIN [None]
